FAERS Safety Report 21163782 (Version 2)
Quarter: 2022Q3

REPORT INFORMATION
  Report Type: Report from Study
  Country: BR (occurrence: BR)
  Receive Date: 20220803
  Receipt Date: 20220807
  Transmission Date: 20221027
  Serious: Yes (Hospitalization)
  Sender: FDA-Public Use
  Company Number: BR-BIOGEN-2022BI01143653

PATIENT
  Age: 54 Year
  Sex: Female
  Weight: 50 kg

DRUGS (3)
  1. TECFIDERA [Suspect]
     Active Substance: DIMETHYL FUMARATE
     Indication: Multiple sclerosis
     Dosage: MAINTENANCE DOSE.
     Route: 050
     Dates: start: 2020, end: 20220726
  2. HISTAMIN (MALEATO DE DEXCLORFENIRAMINA) [Concomitant]
     Indication: Rhinitis allergic
     Route: 050
  3. LIBIAM (TIBOLONA) [Concomitant]
     Indication: Menopause
     Route: 050
     Dates: start: 2016

REACTIONS (1)
  - Multiple sclerosis relapse [Recovered/Resolved]

NARRATIVE: CASE EVENT DATE: 20220620
